FAERS Safety Report 10964140 (Version 1)
Quarter: 2015Q1

REPORT INFORMATION
  Report Type: Spontaneous
  Country: US (occurrence: None)
  Receive Date: 20150226
  Receipt Date: 20150226
  Transmission Date: 20150721
  Serious: Yes (Other)
  Sender: FDA-Public Use
  Company Number: TPA2012A03461

PATIENT
  Age: 59 Year
  Sex: Female
  Weight: 81.65 kg

DRUGS (3)
  1. METFONNIN (METFORMIN HYDROCHLORIDE) [Concomitant]
  2. AMARYL [Concomitant]
     Active Substance: GLIMEPIRIDE
  3. ACTOS [Suspect]
     Active Substance: PIOGLITAZONE HYDROCHLORIDE
     Indication: TYPE 2 DIABETES MELLITUS
     Dates: start: 2005, end: 2010

REACTIONS (2)
  - Urinary tract infection [None]
  - Bladder cancer [None]

NARRATIVE: CASE EVENT DATE: 200810
